FAERS Safety Report 24728678 (Version 2)
Quarter: 2024Q4

REPORT INFORMATION
  Report Type: Spontaneous
  Country: US (occurrence: US)
  Receive Date: 20241212
  Receipt Date: 20241220
  Transmission Date: 20250115
  Serious: Yes (Other)
  Sender: SANDOZ
  Company Number: US-Sandoz Group AG-00013082

PATIENT
  Sex: Female

DRUGS (2)
  1. GABAPENTIN [Suspect]
     Active Substance: GABAPENTIN
     Indication: Product used for unknown indication
     Dosage: UNK
     Route: 065
  2. RECLAST [Suspect]
     Active Substance: ZOLEDRONIC ACID
     Indication: Osteoporosis
     Dosage: UNK
     Route: 065

REACTIONS (8)
  - Arthritis [Unknown]
  - Impaired quality of life [Unknown]
  - Sluggishness [Unknown]
  - Nausea [Recovered/Resolved]
  - Chills [Recovering/Resolving]
  - Dizziness [Unknown]
  - Pain [Unknown]
  - Fatigue [Unknown]
